FAERS Safety Report 7345415-7 (Version None)
Quarter: 2011Q1

REPORT INFORMATION
  Report Type: 
  Country: None (occurrence: None)
  Receive Date: 20110310
  Receipt Date: 20110301
  Transmission Date: 20110831
  Serious: Yes (Hospitalization, Other)
  Sender: FDA-Public Use
  Company Number: NO-ASTRAZENECA-2011SE11309

PATIENT
  Age: 852 Month
  Sex: Female

DRUGS (11)
  1. ALBYL-E [Concomitant]
     Indication: AORTIC VALVE REPLACEMENT
     Route: 048
  2. ZOPICLONE ACTAVIS [Concomitant]
     Indication: INSOMNIA
     Route: 048
  3. ATACAND [Suspect]
     Indication: AORTIC VALVE REPLACEMENT
     Route: 048
     Dates: start: 20101026, end: 20101218
  4. SELO-ZOK [Concomitant]
     Indication: AORTIC VALVE REPLACEMENT
     Route: 048
  5. PARACET [Concomitant]
     Dosage: AS REQUIRED
     Route: 048
  6. LEVOTHYROXINE SODIUM [Concomitant]
     Indication: HYPOTHYROIDISM
     Route: 048
  7. SIMVASTATIN [Concomitant]
     Indication: HYPERCHOLESTEROLAEMIA
     Route: 048
  8. LITHIONIT [Interacting]
     Indication: BIPOLAR DISORDER
     Route: 048
     Dates: end: 20101218
  9. MUCOMYST [Concomitant]
     Indication: PRODUCTIVE COUGH
     Route: 048
  10. COSYLAN [Concomitant]
     Route: 048
  11. AKINETON [Concomitant]
     Indication: PARKINSONISM
     Route: 048

REACTIONS (6)
  - CONFUSIONAL STATE [None]
  - DRUG INTERACTION [None]
  - TOXICITY TO VARIOUS AGENTS [None]
  - TREMOR [None]
  - RESTLESSNESS [None]
  - MUSCLE TWITCHING [None]
